FAERS Safety Report 25742042 (Version 1)
Quarter: 2025Q3

REPORT INFORMATION
  Report Type: Spontaneous
  Country: MX (occurrence: MX)
  Receive Date: 20250829
  Receipt Date: 20250829
  Transmission Date: 20251021
  Serious: Yes (Other)
  Sender: ELI LILLY AND COMPANY
  Company Number: MX-ELI_LILLY_AND_COMPANY-MX202507021004

PATIENT
  Age: 49 Year
  Sex: Female

DRUGS (2)
  1. VERZENIO [Suspect]
     Active Substance: ABEMACICLIB
     Indication: Breast cancer
     Route: 065
     Dates: start: 202312
  2. LETROZOLE [Concomitant]
     Active Substance: LETROZOLE
     Indication: Breast cancer
     Dates: start: 202312

REACTIONS (12)
  - Syncope [Unknown]
  - Sensitive skin [Unknown]
  - Skin lesion [Unknown]
  - Skin discolouration [Unknown]
  - Skin burning sensation [Unknown]
  - Mental impairment [Unknown]
  - Gastrointestinal disorder [Recovering/Resolving]
  - Vision blurred [Unknown]
  - General physical health deterioration [Unknown]
  - Pruritus [Unknown]
  - Diarrhoea [Recovering/Resolving]
  - Fatigue [Unknown]
